FAERS Safety Report 15248625 (Version 1)
Quarter: 2018Q3

REPORT INFORMATION
  Report Type: Spontaneous
  Country: US (occurrence: US)
  Receive Date: 20180716
  Receipt Date: 20180716
  Transmission Date: 20181010
  Serious: No
  Sender: FDA-Public Use
  Company Number: None

PATIENT
  Age: 68 Year
  Sex: Female
  Weight: 50.8 kg

DRUGS (7)
  1. VITAMIN D3 [Concomitant]
     Active Substance: CHOLECALCIFEROL
  2. B? COMPLEX/HERBST MINERALS [Concomitant]
  3. MTV [Concomitant]
  4. ACETAZOLAMIDE 250MG TABLET [Suspect]
     Active Substance: ACETAZOLAMIDE
     Indication: INTRAOCULAR PRESSURE TEST
     Dosage: ?          QUANTITY:1 DF DOSAGE FORM;?
     Route: 048
  5. LISINIPRIL [Concomitant]
     Active Substance: LISINOPRIL
  6. ATORVASTATIN [Concomitant]
     Active Substance: ATORVASTATIN
  7. VIT K2 [Concomitant]

REACTIONS (5)
  - Tinnitus [None]
  - Formication [None]
  - Muscle twitching [None]
  - Ear pain [None]
  - Headache [None]

NARRATIVE: CASE EVENT DATE: 20170512
